FAERS Safety Report 13335741 (Version 1)
Quarter: 2017Q1

REPORT INFORMATION
  Report Type: Spontaneous
  Country: US (occurrence: US)
  Receive Date: 20170315
  Receipt Date: 20170315
  Transmission Date: 20170428
  Serious: Yes (Other)
  Sender: FDA-Public Use
  Company Number: US-TEVA-749150USA

PATIENT
  Age: 43 Year
  Sex: Female

DRUGS (1)
  1. COPAXONE [Suspect]
     Active Substance: GLATIRAMER ACETATE
     Indication: MULTIPLE SCLEROSIS
     Route: 058
     Dates: start: 20161221

REACTIONS (7)
  - Vision blurred [Unknown]
  - Nasopharyngitis [Recovering/Resolving]
  - Injection site erythema [Unknown]
  - Multiple sclerosis relapse [Unknown]
  - Diplopia [Unknown]
  - Balance disorder [Unknown]
  - Injection site swelling [Unknown]

NARRATIVE: CASE EVENT DATE: 201702
